FAERS Safety Report 6202590-5 (Version None)
Quarter: 2009Q2

REPORT INFORMATION
  Report Type: 
  Country: None (occurrence: None)
  Receive Date: 20090521
  Receipt Date: 20090521
  Transmission Date: 20091009
  Serious: Yes (Death)
  Sender: FDA-Public Use
  Company Number: None

PATIENT
  Sex: Male
  Weight: 89.2 kg

DRUGS (4)
  1. RITUXIMAB [Suspect]
     Indication: WALDENSTROM'S MACROGLOBULINAEMIA
     Dosage: 375 MG/M2 5 TIMES IVPB
     Route: 042
     Dates: start: 20080818, end: 20081007
  2. FLUDARABINE PHOSPHATE [Concomitant]
  3. CYCLOPHOSPHAMIDE [Concomitant]
  4. METHOTREXATE [Concomitant]

REACTIONS (8)
  - B-CELL LYMPHOMA [None]
  - DISEASE RECURRENCE [None]
  - DYSPNOEA [None]
  - FEBRILE NEUTROPENIA [None]
  - NIGHT SWEATS [None]
  - NO THERAPEUTIC RESPONSE [None]
  - PYREXIA [None]
  - UPPER RESPIRATORY TRACT CONGESTION [None]
